FAERS Safety Report 4379443-0 (Version None)
Quarter: 2004Q2

REPORT INFORMATION
  Report Type: 
  Country: None (occurrence: None)
  Receive Date: 20040610
  Receipt Date: 20040526
  Transmission Date: 20050107
  Serious: Yes (Death, Hospitalization, Other)
  Sender: FDA-Public Use
  Company Number: 04-201-0768

PATIENT
  Age: 74 Year
  Sex: Male
  Weight: 87 kg

DRUGS (1)
  1. DAUNORUBICIN, UNKNOWN STRENGTH , BEN VENUE LABS [Suspect]
     Indication: ACUTE MYELOID LEUKAEMIA
     Dosage: 45 MG/M2 IV DAYS 1,3

REACTIONS (7)
  - BLOOD BILIRUBIN INCREASED [None]
  - GAMMA-GLUTAMYLTRANSFERASE INCREASED [None]
  - HYPOTENSION [None]
  - INFECTION [None]
  - NEUTROPENIA [None]
  - RENAL FAILURE [None]
  - SUPRAVENTRICULAR TACHYCARDIA [None]
